FAERS Safety Report 18207639 (Version 1)
Quarter: 2020Q3

REPORT INFORMATION
  Report Type: Spontaneous
  Country: US (occurrence: US)
  Receive Date: 20200828
  Receipt Date: 20200828
  Transmission Date: 20201103
  Serious: Yes (Hospitalization)
  Sender: FDA-Public Use
  Company Number: None

PATIENT
  Age: 34 Month
  Sex: Female

DRUGS (5)
  1. ASPIRIN LOW DOSE [Concomitant]
     Active Substance: ASPIRIN
  2. SPIRONOLACTONE. [Concomitant]
     Active Substance: SPIRONOLACTONE
  3. SILDENAFIL. [Suspect]
     Active Substance: SILDENAFIL
     Indication: HYPOPLASTIC LEFT HEART SYNDROME
     Route: 048
     Dates: start: 20190710
  4. FUROSEMIDE. [Concomitant]
     Active Substance: FUROSEMIDE
  5. MULTIVITAMIN [Concomitant]
     Active Substance: VITAMINS

REACTIONS (2)
  - Cardiac operation [None]
  - Therapy interrupted [None]

NARRATIVE: CASE EVENT DATE: 20200812
